FAERS Safety Report 9405234 (Version 4)
Quarter: 2013Q3

REPORT INFORMATION
  Report Type: Spontaneous
  Country: US (occurrence: US)
  Receive Date: 20130717
  Receipt Date: 20130829
  Transmission Date: 20140515
  Serious: Yes (Death, Hospitalization)
  Sender: FDA-Public Use
  Company Number: US-BAXTER-2013BAX027398

PATIENT
  Age: 63 Year
  Sex: Female

DRUGS (1)
  1. DIANEAL PD2 [Suspect]
     Indication: RENAL FAILURE CHRONIC
     Route: 033
     Dates: end: 20130805

REACTIONS (6)
  - Death [Fatal]
  - Pneumonia [Recovering/Resolving]
  - Urinary tract infection [Unknown]
  - Colitis [Unknown]
  - Gastrointestinal haemorrhage [Unknown]
  - General physical health deterioration [Unknown]
